FAERS Safety Report 17762910 (Version 1)
Quarter: 2020Q2

REPORT INFORMATION
  Report Type: Spontaneous
  Country: BE (occurrence: BE)
  Receive Date: 20200508
  Receipt Date: 20200508
  Transmission Date: 20200714
  Serious: Yes (Life-Threatening)
  Sender: FDA-Public Use
  Company Number: BE-AMNEAL PHARMACEUTICALS-2020-AMRX-01317

PATIENT
  Age: 53 Year

DRUGS (1)
  1. TIGECYCLINE. [Suspect]
     Active Substance: TIGECYCLINE
     Indication: MYCOBACTERIUM ABSCESSUS INFECTION
     Dosage: UNK
     Route: 065

REACTIONS (2)
  - Coagulopathy [Unknown]
  - Hypofibrinogenaemia [Unknown]
